FAERS Safety Report 6394247-5 (Version None)
Quarter: 2009Q4

REPORT INFORMATION
  Report Type: 
  Country: None (occurrence: None)
  Receive Date: 20091006
  Receipt Date: 20090922
  Transmission Date: 20100525
  Serious: Yes (Other)
  Sender: FDA-Public Use
  Company Number: B0595689A

PATIENT
  Age: 50 Year
  Sex: Female

DRUGS (4)
  1. MELPHALAN HYDROCHLORIDE [Suspect]
     Indication: MULTIPLE MYELOMA
  2. MORPHINE [Concomitant]
  3. HEPARIN [Concomitant]
  4. PEGFILGRASTIM [Concomitant]

REACTIONS (12)
  - ATRIAL FLUTTER [None]
  - CEREBRAL HAEMORRHAGE [None]
  - COMA [None]
  - CONTINUOUS HAEMODIAFILTRATION [None]
  - GASTROINTESTINAL HAEMORRHAGE [None]
  - GASTROINTESTINAL INFLAMMATION [None]
  - GENERAL PHYSICAL HEALTH DETERIORATION [None]
  - GRIMACING [None]
  - METABOLIC ENCEPHALOPATHY [None]
  - PLATELET COUNT DECREASED [None]
  - SOMNOLENCE [None]
  - TONIC CONVULSION [None]
